FAERS Safety Report 9348644 (Version 1)
Quarter: 2013Q2

REPORT INFORMATION
  Report Type: Report from Study
  Country: AU (occurrence: AU)
  Receive Date: 20130614
  Receipt Date: 20130614
  Transmission Date: 20140414
  Serious: Yes (Other)
  Sender: FDA-Public Use
  Company Number: AU-JNJFOC-20130604398

PATIENT
  Age: 41 Year
  Sex: Male
  Weight: 82 kg

DRUGS (6)
  1. STELARA [Suspect]
     Indication: PSORIASIS
     Route: 058
     Dates: start: 20110401
  2. STELARA [Suspect]
     Indication: PSORIASIS
     Route: 058
     Dates: start: 20110106
  3. STELARA [Suspect]
     Indication: PSORIASIS
     Route: 058
     Dates: start: 20100406
  4. HUMALOG [Concomitant]
     Indication: DIABETES MELLITUS
     Dates: start: 1990
  5. NOVORAPID [Concomitant]
     Indication: DIABETES MELLITUS
     Dates: start: 1990
  6. STELARA [Suspect]
     Indication: PSORIASIS
     Route: 058
     Dates: start: 20101015

REACTIONS (2)
  - Pertussis [Recovered/Resolved]
  - Psoriasis [Unknown]
